FAERS Safety Report 9240382 (Version 1)
Quarter: 2013Q2

REPORT INFORMATION
  Report Type: Spontaneous
  Country: BR (occurrence: BR)
  Receive Date: 20130418
  Receipt Date: 20130418
  Transmission Date: 20140414
  Serious: Yes (Other)
  Sender: FDA-Public Use
  Company Number: BR-MERCK-1304BRA007515

PATIENT
  Age: 22 Year
  Sex: Female
  Weight: 64 kg

DRUGS (2)
  1. REMERON SOLTAB [Suspect]
     Indication: SLEEP DISORDER
     Dosage: 30 MG, UNK
     Route: 048
     Dates: start: 20130322, end: 20130322
  2. REMERON SOLTAB [Suspect]
     Indication: FEEDING DISORDER

REACTIONS (3)
  - Multiple sclerosis [Unknown]
  - Hypersomnia [Recovered/Resolved]
  - Off label use [Unknown]
